FAERS Safety Report 23786557 (Version 2)
Quarter: 2025Q2

REPORT INFORMATION
  Report Type: Spontaneous
  Country: US (occurrence: US)
  Receive Date: 20240426
  Receipt Date: 20250424
  Transmission Date: 20250717
  Serious: No
  Sender: ACCORD
  Company Number: US-Accord-406591

PATIENT
  Age: 66 Year
  Sex: Male
  Weight: 74.39 kg

DRUGS (6)
  1. OXYBUTYNIN [Suspect]
     Active Substance: OXYBUTYNIN
     Indication: Product used for unknown indication
     Dosage: STRENGTH: 5 MG; BEFORE BEDTIME?TAKING FOR THE PAST SEVERAL WEEKS
     Route: 048
  2. BUPRENORPHINE [Concomitant]
     Active Substance: BUPRENORPHINE
  3. BUPROPION [Concomitant]
     Active Substance: BUPROPION
  4. CYMBALTA [Concomitant]
     Active Substance: DULOXETINE HYDROCHLORIDE
  5. ATORVASTATIN [Concomitant]
     Active Substance: ATORVASTATIN
  6. OXYBUTYNIN [Suspect]
     Active Substance: OXYBUTYNIN
     Indication: Product used for unknown indication

REACTIONS (4)
  - Drug ineffective [Unknown]
  - Product substitution issue [Unknown]
  - Drug intolerance [Unknown]
  - Pollakiuria [Unknown]
